FAERS Safety Report 8011438-8 (Version None)
Quarter: 2011Q4

REPORT INFORMATION
  Report Type: 
  Country: None (occurrence: None)
  Receive Date: 20111228
  Receipt Date: 20111219
  Transmission Date: 20120403
  Serious: Yes (Other)
  Sender: FDA-Public Use
  Company Number: US-BAYER-2011-032369

PATIENT
  Sex: Female
  Weight: 137.42 kg

DRUGS (4)
  1. HYDROCHLOROTHIAZIDE [Concomitant]
     Indication: OEDEMA
     Dosage: UNK
     Dates: start: 20050101, end: 20080101
  2. LISINOPRIL [Concomitant]
     Indication: BLOOD PRESSURE MANAGEMENT
     Dosage: UNK
     Dates: start: 20081201
  3. PROZAC [Concomitant]
     Indication: DEPRESSION
     Dosage: UNK
     Dates: start: 20040101
  4. YAZ [Suspect]
     Indication: CONTRACEPTION
     Dosage: UNK
     Dates: start: 20061201, end: 20090101

REACTIONS (3)
  - CHOLELITHIASIS [None]
  - CHOLECYSTITIS CHRONIC [None]
  - PAIN [None]
